FAERS Safety Report 16804759 (Version 1)
Quarter: 2019Q3

REPORT INFORMATION
  Report Type: Spontaneous
  Country: US (occurrence: US)
  Receive Date: 20190723
  Receipt Date: 20190723
  Transmission Date: 20191005
  Serious: Yes (Hospitalization)
  Sender: FDA-Public Use
  Company Number: None

PATIENT
  Age: 61 Year
  Sex: Male

DRUGS (1)
  1. LOSARTAN. [Suspect]
     Active Substance: LOSARTAN
     Indication: HYPERTENSION
     Dates: start: 20170317, end: 20190531

REACTIONS (8)
  - Somnolence [None]
  - Obstructive airways disorder [None]
  - Dysphonia [None]
  - Lethargy [None]
  - Angioedema [None]
  - Respiratory failure [None]
  - Drooling [None]
  - Swollen tongue [None]

NARRATIVE: CASE EVENT DATE: 20190531
